FAERS Safety Report 11654545 (Version 1)
Quarter: 2015Q4

REPORT INFORMATION
  Report Type: Other
  Country: US (occurrence: US)
  Receive Date: 20151023
  Receipt Date: 20151023
  Transmission Date: 20160304
  Serious: Yes (Other)
  Sender: FDA-Public Use
  Company Number: US-SHIRE-US201512825

PATIENT
  Age: 17 Year
  Sex: Female

DRUGS (2)
  1. CINRYZE [Suspect]
     Active Substance: HUMAN C1-ESTERASE INHIBITOR
     Indication: PROPHYLAXIS
     Dosage: 1 DF, ONE DOSE, UNSCHEDULED
     Route: 042
     Dates: start: 20151013, end: 20151013
  2. CINRYZE [Suspect]
     Active Substance: HUMAN C1-ESTERASE INHIBITOR
     Indication: HEREDITARY ANGIOEDEMA
     Dosage: 1000 UNITS, 1X/WEEK
     Route: 042
     Dates: start: 20130924

REACTIONS (4)
  - Peripheral swelling [Unknown]
  - Product use issue [Unknown]
  - Inappropriate schedule of drug administration [Not Recovered/Not Resolved]
  - Local swelling [Unknown]

NARRATIVE: CASE EVENT DATE: 20150924
